FAERS Safety Report 10522697 (Version 1)
Quarter: 2014Q4

REPORT INFORMATION
  Report Type: Spontaneous
  Country: US (occurrence: None)
  Receive Date: 20141010
  Receipt Date: 20141010
  Transmission Date: 20150528
  Serious: Yes (Hospitalization)
  Sender: FDA-Public Use
  Company Number: AEGR000769

PATIENT
  Age: 51 Year
  Sex: Female
  Weight: 110.7 kg

DRUGS (1)
  1. JUXTAPID [Suspect]
     Active Substance: LOMITAPIDE MESYLATE
     Indication: TYPE IIA HYPERLIPIDAEMIA
     Dosage: UNK
     Dates: start: 20131229, end: 20140828

REACTIONS (2)
  - Dyspnoea [None]
  - Viral infection [None]

NARRATIVE: CASE EVENT DATE: 201409
